FAERS Safety Report 12382050 (Version 1)
Quarter: 2016Q2

REPORT INFORMATION
  Report Type: Spontaneous
  Country: US (occurrence: None)
  Receive Date: 20160517
  Receipt Date: 20160517
  Transmission Date: 20160815
  Serious: Yes (Other)
  Sender: FDA-Public Use
  Company Number: None

PATIENT

DRUGS (1)
  1. PHARMEDIUM FENTANL PCA CASSETTES [Suspect]
     Active Substance: FENTANYL

REACTIONS (2)
  - Product tampering [None]
  - Product outer packaging issue [None]

NARRATIVE: CASE EVENT DATE: 20160308
